FAERS Safety Report 14066287 (Version 1)
Quarter: 2017Q4

REPORT INFORMATION
  Report Type: Spontaneous
  Country: US (occurrence: None)
  Receive Date: 20171007
  Receipt Date: 20171007
  Transmission Date: 20180321
  Serious: No
  Sender: FDA-Public Use
  Company Number: None

PATIENT
  Sex: Female
  Weight: 58.97 kg

DRUGS (1)
  1. FORTEO [Suspect]
     Active Substance: TERIPARATIDE
     Indication: OSTEOPOROSIS
     Route: 058
     Dates: start: 20170915

REACTIONS (7)
  - Viral infection [None]
  - Vomiting [None]
  - Weight increased [None]
  - Stress [None]
  - Nausea [None]
  - Dehydration [None]
  - Duodenal ulcer [None]
